FAERS Safety Report 19584257 (Version 12)
Quarter: 2021Q4

REPORT INFORMATION
  Report Type: Report from Study
  Country: CA (occurrence: None)
  Receive Date: 20210720
  Receipt Date: 20211129
  Transmission Date: 20220303
  Serious: Yes (Hospitalization)
  Sender: FDA-Public Use
  Company Number: CA-EISAI MEDICAL RESEARCH-EC-2021-096397

PATIENT
  Age: 73 Year
  Sex: Female
  Weight: 92 kg

DRUGS (32)
  1. LENVATINIB [Suspect]
     Active Substance: LENVATINIB
     Indication: Endometrial cancer
     Dosage: STARTING DOSE: 20 MILLIGRAM; FLUCTUATED DOSEAGE
     Route: 048
     Dates: start: 20201014, end: 20210711
  2. LENVATINIB [Suspect]
     Active Substance: LENVATINIB
     Route: 048
     Dates: start: 20210712, end: 20210712
  3. PEMBROLIZUMAB [Suspect]
     Active Substance: PEMBROLIZUMAB
     Indication: Endometrial cancer
     Route: 041
     Dates: start: 20201014, end: 20210602
  4. PEMBROLIZUMAB [Suspect]
     Active Substance: PEMBROLIZUMAB
     Route: 041
     Dates: start: 20210623, end: 20210623
  5. METFORMIN [Concomitant]
     Active Substance: METFORMIN HYDROCHLORIDE
     Dates: start: 201001
  6. BISOPROLOL [Concomitant]
     Active Substance: BISOPROLOL
     Dates: start: 201001, end: 20210916
  7. PRINIVIL [Concomitant]
     Active Substance: LISINOPRIL
     Dates: start: 201001, end: 20210907
  8. TYLENOL EXTRA STRENGTH [Concomitant]
     Active Substance: ACETAMINOPHEN
     Dates: start: 201001, end: 20210712
  9. TOVIAZ [Concomitant]
     Active Substance: FESOTERODINE FUMARATE
     Dates: start: 202001
  10. LOMOTIL [Concomitant]
     Active Substance: ATROPINE SULFATE\DIPHENOXYLATE HYDROCHLORIDE
     Dates: start: 202001
  11. CHOLECALCIFEROL [Concomitant]
     Active Substance: CHOLECALCIFEROL
     Dates: start: 202001
  12. OLANZAPINE [Concomitant]
     Active Substance: OLANZAPINE
     Dates: start: 202001
  13. UBIDECARENONE [Concomitant]
     Active Substance: UBIDECARENONE
     Dates: start: 202001
  14. RABEPRAZOLE SODIUM [Concomitant]
     Active Substance: RABEPRAZOLE SODIUM
     Dates: start: 202001
  15. ALBUTEROL [Concomitant]
     Active Substance: ALBUTEROL
     Dates: start: 202001
  16. ROSUVASTATIN [Concomitant]
     Active Substance: ROSUVASTATIN
     Dates: start: 202001
  17. ONDANSETRON [Concomitant]
     Active Substance: ONDANSETRON
     Dates: start: 202001
  18. SYMBICORT [Concomitant]
     Active Substance: BUDESONIDE\FORMOTEROL FUMARATE DIHYDRATE
     Dates: start: 202001
  19. MYRBETRIQ [Concomitant]
     Active Substance: MIRABEGRON
     Dates: start: 202001
  20. CYANOCOBALAMIN [Concomitant]
     Active Substance: CYANOCOBALAMIN
     Dates: start: 202001
  21. DIGESTIVES ENZYMES [Concomitant]
     Dates: start: 202001
  22. CANNABIS SATIVA FLOWERING TOP [Concomitant]
     Active Substance: CANNABIS SATIVA FLOWERING TOP
     Dates: start: 202001
  23. POLYETHYLENE GLYCOL 3350 [Concomitant]
     Active Substance: POLYETHYLENE GLYCOL 3350
     Dates: start: 20200916
  24. SENOKOT [Concomitant]
     Active Substance: SENNOSIDES
     Dates: start: 20200916
  25. FERROUS FUMARATE [Concomitant]
     Active Substance: FERROUS FUMARATE
     Dates: start: 20200916
  26. AMLODIPINE [Concomitant]
     Active Substance: AMLODIPINE BESYLATE
     Dates: start: 20201015, end: 20210717
  27. AURALGAN [Concomitant]
     Dates: start: 20210104
  28. LORATADINE [Concomitant]
     Active Substance: LORATADINE
     Dates: start: 20210217
  29. SYNTHROID [Concomitant]
     Active Substance: LEVOTHYROXINE SODIUM
     Dates: start: 20210623
  30. FLUTICASONE [Concomitant]
     Active Substance: FLUTICASONE
     Route: 045
     Dates: start: 200201
  31. ESCITALOPRAM [Concomitant]
     Active Substance: ESCITALOPRAM OXALATE
     Dates: start: 20201208, end: 20210814
  32. LORAZEPAM [Concomitant]
     Active Substance: LORAZEPAM
     Dates: start: 20201208

REACTIONS (1)
  - Immune-mediated enterocolitis [Recovered/Resolved]

NARRATIVE: CASE EVENT DATE: 20210712
